FAERS Safety Report 5287541-2 (Version None)
Quarter: 2007Q1

REPORT INFORMATION
  Report Type: 
  Country: None (occurrence: None)
  Receive Date: 20070108
  Receipt Date: 20060927
  Transmission Date: 20070707
  Serious: Yes (Hospitalization)
  Sender: FDA-Public Use
  Company Number: DSA_28758_2006

PATIENT
  Age: 76 Year
  Sex: Male
  Weight: 99.7913 kg

DRUGS (4)
  1. CARDIZEM [Suspect]
     Indication: HYPERTENSION
     Dosage: DF  A FEW YEARS
     Dates: end: 20060901
  2. ATENOLOL [Concomitant]
  3. HYDROCHLOROTHIAZIDE [Concomitant]
  4. SPIRONOLACTONE [Concomitant]

REACTIONS (2)
  - HEART RATE DECREASED [None]
  - LOSS OF CONSCIOUSNESS [None]
